FAERS Safety Report 9162831 (Version 1)
Quarter: 2013Q1

REPORT INFORMATION
  Report Type: Spontaneous
  Country: US (occurrence: US)
  Receive Date: 20130314
  Receipt Date: 20130314
  Transmission Date: 20140127
  Serious: Yes (Hospitalization)
  Sender: FDA-Public Use
  Company Number: US-BAYER-2013-030252

PATIENT
  Age: 43 Year
  Sex: Female
  Weight: 57 kg

DRUGS (11)
  1. BEYAZ [Suspect]
  2. YAZ [Suspect]
  3. GIANVI [Suspect]
  4. ONDANSETRON [Concomitant]
  5. TIZANIDINE [Concomitant]
  6. MELATONIN [Concomitant]
  7. THIAMIN [Concomitant]
  8. HYDOPA [Concomitant]
  9. CALCIUM +VIT D [Concomitant]
  10. SAM-E [Concomitant]
  11. PEPTO BISMOL [Concomitant]

REACTIONS (3)
  - Cholecystitis chronic [None]
  - Vena cava thrombosis [None]
  - Pelvic venous thrombosis [None]
